FAERS Safety Report 11898900 (Version 1)
Quarter: 2016Q1

REPORT INFORMATION
  Report Type: Spontaneous
  Country: US (occurrence: US)
  Receive Date: 20160108
  Receipt Date: 20160108
  Transmission Date: 20160526
  Serious: Yes (Hospitalization)
  Sender: FDA-Public Use
  Company Number: US-ASTELLAS-2016US000613

PATIENT
  Sex: Female

DRUGS (1)
  1. TARCEVA [Suspect]
     Active Substance: ERLOTINIB HYDROCHLORIDE
     Indication: PRODUCT USED FOR UNKNOWN INDICATION
     Route: 048
     Dates: start: 20150409

REACTIONS (9)
  - Atrial fibrillation [Unknown]
  - Nasal oedema [Unknown]
  - Diarrhoea [Unknown]
  - Mass [Unknown]
  - Alopecia [Unknown]
  - Dry skin [Unknown]
  - Skin discolouration [Unknown]
  - Rhinalgia [Unknown]
  - Pruritus [Unknown]
